FAERS Safety Report 7117922-3 (Version None)
Quarter: 2010Q4

REPORT INFORMATION
  Report Type: 
  Country: None (occurrence: None)
  Receive Date: 20101123
  Receipt Date: 20101101
  Transmission Date: 20110411
  Serious: Yes (Other)
  Sender: FDA-Public Use
  Company Number: US-RANBAXY-2010RR-39554

PATIENT
  Sex: Female

DRUGS (7)
  1. PREDNISOLONE [Suspect]
     Indication: CHRONIC OBSTRUCTIVE PULMONARY DISEASE
     Dosage: 5 MG, TID
     Route: 048
  2. LEVAQUIN [Suspect]
     Indication: INFECTION
     Dosage: 500 MG, QD
     Route: 048
     Dates: start: 20070301
  3. LEVAQUIN [Suspect]
     Indication: PROPHYLAXIS
  4. CIPROFLOXACIN [Suspect]
     Indication: INFECTION
     Dosage: UNK
     Route: 065
     Dates: start: 20060101
  5. CIPROFLOXACIN [Suspect]
     Dosage: UNK
     Dates: start: 20070101
  6. METHYLPREDNISOLONE [Suspect]
     Indication: CHRONIC OBSTRUCTIVE PULMONARY DISEASE
     Dosage: UNK
     Route: 065
     Dates: start: 20060101
  7. METHYLPREDNISOLONE [Suspect]
     Dosage: UNK
     Dates: start: 20070101

REACTIONS (1)
  - ROTATOR CUFF SYNDROME [None]
